FAERS Safety Report 8101548-9 (Version None)
Quarter: 2012Q1

REPORT INFORMATION
  Report Type: 
  Country: None (occurrence: None)
  Receive Date: 20120126
  Receipt Date: 20120116
  Transmission Date: 20120608
  Serious: Yes (Hospitalization, Other)
  Sender: FDA-Public Use
  Company Number: 2012MA000748

PATIENT
  Sex: Male
  Weight: 104.3273 kg

DRUGS (57)
  1. BISOPROLOL FUMARATE AND HYDROCHLOROTHIAZIDE [Concomitant]
  2. CELEBREX [Concomitant]
  3. COMBIVENT [Concomitant]
  4. DULCOLAX [Concomitant]
  5. FEXOFENADINE [Concomitant]
  6. MIRALAX [Concomitant]
  7. SYNTHROID [Concomitant]
  8. ALLEGRA [Concomitant]
  9. AVODART [Concomitant]
  10. COLACE [Concomitant]
  11. DIAZEPAM [Concomitant]
  12. KLOR-CON [Concomitant]
  13. MICRO [Concomitant]
  14. AMITIZA [Concomitant]
  15. DARVOCET-N 100 [Concomitant]
  16. OXYBUTYNIN [Concomitant]
  17. SORBITOL 50PC INJ [Concomitant]
  18. VESICARE [Concomitant]
  19. ACIPHEX [Concomitant]
  20. ASPIRIN [Concomitant]
  21. DITROPAN [Concomitant]
  22. GAVISCON [Concomitant]
  23. LEVAQUIN [Concomitant]
  24. LORAZEPAM [Concomitant]
  25. M.V.I. [Concomitant]
  26. NEXIUM [Concomitant]
  27. NORVASC [Concomitant]
  28. PRAVACHOL [Concomitant]
  29. TESSALON [Concomitant]
  30. ZELNORM [Concomitant]
  31. BENICAR [Concomitant]
  32. CARDURA [Concomitant]
  33. CLARITIN [Concomitant]
  34. FUROSEMIDE [Concomitant]
  35. HYTRIN [Concomitant]
  36. PEPCID [Concomitant]
  37. ZYRTEC [Concomitant]
  38. LASIX [Concomitant]
  39. LIPITOR [Concomitant]
  40. TERAZOSIN HCL [Concomitant]
  41. DOXYCYCLINE [Concomitant]
  42. ISORDIL [Concomitant]
  43. NASONEX [Concomitant]
  44. NITROGLYCERIN [Concomitant]
  45. PREDNISONE [Concomitant]
  46. SEREVENT [Concomitant]
  47. ZIAC [Concomitant]
  48. METOCLOPRAMIDE [Suspect]
     Indication: NAUSEA
     Dosage: 10 MG,
     Dates: start: 19820101, end: 20090901
  49. METOCLOPRAMIDE [Suspect]
     Indication: FLATULENCE
     Dosage: 10 MG,
     Dates: start: 19820101, end: 20090901
  50. METOCLOPRAMIDE [Suspect]
     Indication: ERUCTATION
     Dosage: 10 MG,
     Dates: start: 19820101, end: 20090901
  51. METOCLOPRAMIDE [Suspect]
     Indication: ABDOMINAL DISTENSION
     Dosage: 10 MG,
     Dates: start: 19820101, end: 20090901
  52. METOCLOPRAMIDE [Suspect]
     Indication: CONSTIPATION
     Dosage: 10 MG,
     Dates: start: 19820101, end: 20090901
  53. ATIVAN [Concomitant]
  54. ISOSORBIDE DINITRATE [Concomitant]
  55. POTASSIUM [Concomitant]
  56. PROTONIX [Concomitant]
  57. TOPROL-XL [Concomitant]

REACTIONS (68)
  - EMOTIONAL DISORDER [None]
  - ASTHENIA [None]
  - DYSPHAGIA [None]
  - BRONCHITIS [None]
  - WEIGHT DECREASED [None]
  - ABDOMINAL TENDERNESS [None]
  - CHEST PAIN [None]
  - SINUS DISORDER [None]
  - DYSTONIA [None]
  - ABDOMINAL PAIN [None]
  - CONSTIPATION [None]
  - SENSORY LOSS [None]
  - HEADACHE [None]
  - COUGH [None]
  - DYSPNOEA [None]
  - INTESTINAL DILATATION [None]
  - NON-CARDIAC CHEST PAIN [None]
  - HAEMATOCHEZIA [None]
  - RENAL CYST [None]
  - CHANGE OF BOWEL HABIT [None]
  - PEPTIC ULCER HAEMORRHAGE [None]
  - HYPERTENSION [None]
  - REGURGITATION [None]
  - ECONOMIC PROBLEM [None]
  - ANHEDONIA [None]
  - AEROPHAGIA [None]
  - GASTROOESOPHAGEAL REFLUX DISEASE [None]
  - CHOLELITHIASIS [None]
  - MUSCULOSKELETAL PAIN [None]
  - SKIN LESION [None]
  - URINARY RETENTION [None]
  - BREAST ENLARGEMENT [None]
  - HEPATIC CYST [None]
  - PERINEAL ABSCESS [None]
  - FLATULENCE [None]
  - CEREBRAL ATROPHY [None]
  - TARDIVE DYSKINESIA [None]
  - CHOREA [None]
  - GASTROINTESTINAL HYPOMOTILITY [None]
  - DIABETES MELLITUS [None]
  - DYSPEPSIA [None]
  - ABDOMINAL ADHESIONS [None]
  - POST PROCEDURAL COMPLICATION [None]
  - CARDIOVASCULAR DISORDER [None]
  - ABDOMINAL DISTENSION [None]
  - ANGINA UNSTABLE [None]
  - FAECAL INCONTINENCE [None]
  - ANXIETY [None]
  - BURNING SENSATION [None]
  - BLADDER OUTLET OBSTRUCTION [None]
  - MITRAL VALVE INCOMPETENCE [None]
  - FATIGUE [None]
  - CORONARY ARTERY OCCLUSION [None]
  - DIVERTICULUM INTESTINAL [None]
  - CEREBRAL SMALL VESSEL ISCHAEMIC DISEASE [None]
  - EXTRAPYRAMIDAL DISORDER [None]
  - INJURY [None]
  - GAIT DISTURBANCE [None]
  - PAIN [None]
  - NAUSEA [None]
  - CARDIAC DISORDER [None]
  - DEPRESSION [None]
  - BREAST PAIN [None]
  - HYPERLIPIDAEMIA [None]
  - HYPERPLASIA [None]
  - ERUCTATION [None]
  - EARLY SATIETY [None]
  - DECREASED APPETITE [None]
